FAERS Safety Report 12462027 (Version 1)
Quarter: 2016Q2

REPORT INFORMATION
  Report Type: Spontaneous
  Country: TR (occurrence: TR)
  Receive Date: 20160613
  Receipt Date: 20160613
  Transmission Date: 20160815
  Serious: Yes (Other)
  Sender: FDA-Public Use
  Company Number: TR-BAUSCH-BL-2016-013882

PATIENT
  Age: 6 Year
  Sex: Female

DRUGS (1)
  1. CYCLOPENTOLATE HYDROCLORUR [Suspect]
     Active Substance: CYCLOPENTOLATE HYDROCHLORIDE
     Indication: EYE DISORDER
     Route: 061

REACTIONS (6)
  - Speech disorder [Recovered/Resolved]
  - Abnormal behaviour [Recovered/Resolved]
  - Psychomotor hyperactivity [Recovered/Resolved]
  - Mental disorder [Recovered/Resolved]
  - Altered state of consciousness [Recovered/Resolved]
  - Ataxia [Recovered/Resolved]
